FAERS Safety Report 5197834-5 (Version None)
Quarter: 2006Q4

REPORT INFORMATION
  Report Type: 
  Country: None (occurrence: None)
  Receive Date: 20061228
  Receipt Date: 20061215
  Transmission Date: 20070319
  Serious: Yes (Hospitalization)
  Sender: FDA-Public Use
  Company Number: 2006BI018427

PATIENT
  Age: 56 Year
  Sex: Male
  Weight: 118.8424 kg

DRUGS (9)
  1. AVONEX [Suspect]
     Indication: MULTIPLE SCLEROSIS
     Dosage: 30 UG QW IM
     Route: 030
     Dates: start: 20010801, end: 20030801
  2. AVONEX [Suspect]
     Indication: MULTIPLE SCLEROSIS
     Dosage: 30 UG QW IM
     Route: 030
     Dates: start: 20030801
  3. CETIRIZINE HCL [Concomitant]
  4. ALLOPURINOL SODIUM [Concomitant]
  5. ENALAPRIL MALEATE [Concomitant]
  6. SINTERED [Concomitant]
  7. VERAPAMIL [Concomitant]
  8. ALPRAZOLAM [Concomitant]
  9. LIPITOR [Concomitant]

REACTIONS (4)
  - DEHYDRATION [None]
  - GASTROENTERITIS VIRAL [None]
  - HEPATIC STEATOSIS [None]
  - TREMOR [None]
